FAERS Safety Report 22528651 (Version 1)
Quarter: 2023Q2

REPORT INFORMATION
  Report Type: Spontaneous
  Country: JP (occurrence: JP)
  Receive Date: 20230607
  Receipt Date: 20230607
  Transmission Date: 20230721
  Serious: Yes (Other)
  Sender: FDA-Public Use
  Company Number: JP-ONO-2023JP014090

PATIENT
  Age: 67 Year
  Sex: Male

DRUGS (2)
  1. YERVOY [Suspect]
     Active Substance: IPILIMUMAB
     Indication: Metastatic renal cell carcinoma
     Dosage: UNK
     Route: 041
  2. OPDIVO [Suspect]
     Active Substance: NIVOLUMAB
     Indication: Metastatic renal cell carcinoma
     Dosage: UNK
     Route: 041

REACTIONS (7)
  - Cytokine storm [Unknown]
  - Cytomegalovirus infection [Recovering/Resolving]
  - Aspergillus infection [Recovering/Resolving]
  - Thrombocytopenia [Unknown]
  - Renal disorder [Unknown]
  - Rash [Unknown]
  - Immune-mediated hepatitis [Recovering/Resolving]
